FAERS Safety Report 4699224-8 (Version None)
Quarter: 2005Q2

REPORT INFORMATION
  Report Type: 
  Country: None (occurrence: None)
  Receive Date: 20050624
  Receipt Date: 20050131
  Transmission Date: 20051028
  Serious: Yes (Hospitalization, Disabling)
  Sender: FDA-Public Use
  Company Number: US-MERCK-0502USA00075

PATIENT
  Age: 51 Year
  Sex: Female
  Weight: 70 kg

DRUGS (13)
  1. TOPROL-XL [Concomitant]
     Indication: HEART RATE IRREGULAR
     Route: 048
     Dates: start: 19930101
  2. VIOXX [Suspect]
     Indication: FIBROMYALGIA
     Route: 048
     Dates: start: 20000901, end: 20040930
  3. VIOXX [Suspect]
     Indication: SPINAL COLUMN STENOSIS
     Route: 048
     Dates: start: 20000901, end: 20040930
  4. DARVOCET-N 100 [Concomitant]
     Route: 065
     Dates: start: 19950101
  5. CALCIUM (UNSPECIFIED) [Concomitant]
     Route: 065
  6. PREMARIN [Concomitant]
     Route: 065
     Dates: start: 19970101, end: 20040601
  7. LORTAB [Concomitant]
     Route: 065
     Dates: start: 19970101, end: 20010101
  8. NORVASC [Concomitant]
     Indication: HYPERTENSION
     Route: 065
     Dates: start: 20030101, end: 20040101
  9. NEURONTIN [Concomitant]
     Route: 065
  10. LOTREL [Concomitant]
     Route: 065
  11. CEPHALEXIN [Concomitant]
     Route: 065
  12. LEVAQUIN [Concomitant]
     Route: 065
  13. AMITRIPTYLIN [Concomitant]
     Route: 065

REACTIONS (10)
  - ANXIETY [None]
  - CAROTID ARTERY STENOSIS [None]
  - CEREBROVASCULAR ACCIDENT [None]
  - DEPRESSION [None]
  - HEADACHE [None]
  - HEPATIC ENZYME INCREASED [None]
  - INSOMNIA [None]
  - MIGRAINE [None]
  - PHARYNGITIS [None]
  - SEBORRHOEIC KERATOSIS [None]
